FAERS Safety Report 13968498 (Version 2)
Quarter: 2017Q3

REPORT INFORMATION
  Report Type: Spontaneous
  Country: US (occurrence: US)
  Receive Date: 20170914
  Receipt Date: 20170926
  Transmission Date: 20171128
  Serious: Yes (Hospitalization)
  Sender: FDA-Public Use
  Company Number: US-LNK INTERNATIONAL, INC.-2026121

PATIENT
  Sex: Female

DRUGS (6)
  1. LISINOPRIL. [Concomitant]
     Active Substance: LISINOPRIL
  2. CLONIDINE. [Concomitant]
     Active Substance: CLONIDINE
  3. LAXATIVE MAXIMUM STRENGTH [Suspect]
     Active Substance: SENNOSIDES
     Indication: CONSTIPATION
  4. FERROUS SULFATE. [Concomitant]
     Active Substance: FERROUS SULFATE
  5. POTASSIUM [Concomitant]
     Active Substance: POTASSIUM
  6. AMLODIPINE [Concomitant]
     Active Substance: AMLODIPINE BESYLATE

REACTIONS (2)
  - Heart rate decreased [None]
  - Rectal haemorrhage [None]
